FAERS Safety Report 10393566 (Version 2)
Quarter: 2014Q3

REPORT INFORMATION
  Report Type: Report from Study
  Country: KR (occurrence: KR)
  Receive Date: 20140819
  Receipt Date: 20140819
  Transmission Date: 20150326
  Serious: Yes (Hospitalization)
  Sender: FDA-Public Use
  Company Number: KR-SA-2014SA108418

PATIENT
  Age: 60 Year
  Sex: Male
  Weight: 78.9 kg

DRUGS (25)
  1. OXALIPLATIN. [Suspect]
     Active Substance: OXALIPLATIN
     Indication: GASTRIC CANCER
     Route: 042
     Dates: start: 20140803, end: 20140803
  2. SMECTA [Concomitant]
     Active Substance: MONTMORILLONITE
     Indication: ADVERSE EVENT
     Dates: start: 20140703, end: 20140706
  3. NASEA [Concomitant]
     Active Substance: RAMOSETRON HYDROCHLORIDE
     Indication: PROPHYLAXIS
     Dates: start: 20140703, end: 20140706
  4. ARESTAL [Concomitant]
     Active Substance: LOPERAMIDE OXIDE
     Indication: ADVERSE EVENT
     Dates: start: 20140619, end: 20140701
  5. SMECTA [Concomitant]
     Active Substance: MONTMORILLONITE
     Indication: ADVERSE EVENT
     Dates: start: 20140629, end: 20140701
  6. DOCETAXEL [Suspect]
     Active Substance: DOCETAXEL
     Indication: GASTRIC CANCER
     Route: 042
     Dates: start: 20140724, end: 20140724
  7. MEGESTROL ACETATE. [Concomitant]
     Active Substance: MEGESTROL ACETATE
     Dates: start: 20140705, end: 20140722
  8. ZANTAC [Concomitant]
     Active Substance: RANITIDINE HYDROCHLORIDE
     Indication: PROPHYLAXIS
     Dates: start: 20140612, end: 20140705
  9. OXALIPLATIN. [Suspect]
     Active Substance: OXALIPLATIN
     Indication: GASTRIC CANCER
     Route: 042
     Dates: start: 20140612, end: 20140612
  10. TS-1 [Suspect]
     Active Substance: GIMERACIL\OTERACIL POTASSIUM\TEGAFUR
     Indication: GASTRIC CANCER
     Route: 048
     Dates: start: 20140612, end: 20140803
  11. SODIUM BICARBONATE. [Concomitant]
     Active Substance: SODIUM BICARBONATE
     Indication: PROPHYLAXIS
     Dates: start: 20140612, end: 20140801
  12. NASEA [Concomitant]
     Active Substance: RAMOSETRON HYDROCHLORIDE
     Indication: PROPHYLAXIS
     Dates: start: 20140724, end: 20140727
  13. NASEA [Concomitant]
     Active Substance: RAMOSETRON HYDROCHLORIDE
     Indication: PROPHYLAXIS
     Dates: start: 20140612, end: 20140615
  14. ARESTAL [Concomitant]
     Active Substance: LOPERAMIDE OXIDE
     Indication: ADVERSE EVENT
     Dates: start: 20140703, end: 20140706
  15. SMECTA [Concomitant]
     Active Substance: MONTMORILLONITE
     Indication: ADVERSE EVENT
     Dates: start: 20140730, end: 20140802
  16. ZANTAC [Concomitant]
     Active Substance: RANITIDINE HYDROCHLORIDE
     Indication: PROPHYLAXIS
     Dates: start: 20140724, end: 20140725
  17. DEXAMETHASONE. [Concomitant]
     Active Substance: DEXAMETHASONE
     Indication: PROPHYLAXIS
     Dates: start: 20140724, end: 20140724
  18. DOCETAXEL [Suspect]
     Active Substance: DOCETAXEL
     Indication: GASTRIC CANCER
     Route: 042
     Dates: start: 20140612, end: 20140612
  19. DOCETAXEL [Suspect]
     Active Substance: DOCETAXEL
     Indication: GASTRIC CANCER
     Route: 042
     Dates: start: 20140803, end: 20140803
  20. DEXAMETHASONE. [Concomitant]
     Active Substance: DEXAMETHASONE
     Indication: PROPHYLAXIS
     Dates: start: 20140612, end: 20140613
  21. DEXAMETHASONE. [Concomitant]
     Active Substance: DEXAMETHASONE
     Indication: PROPHYLAXIS
     Dates: start: 20140703, end: 20140705
  22. NERISONA [Concomitant]
     Active Substance: DIFLUCORTOLONE VALERATE
     Indication: ADVERSE EVENT
     Dates: start: 20140724
  23. OXALIPLATIN. [Suspect]
     Active Substance: OXALIPLATIN
     Indication: GASTRIC CANCER
     Route: 042
     Dates: start: 20140724, end: 20140724
  24. ALL OTHER THERAPEUTIC PRODUCTS [Concomitant]
     Active Substance: UNSPECIFIED INGREDIENT
     Indication: ILL-DEFINED DISORDER
     Dates: start: 20140706
  25. ARESTAL [Concomitant]
     Active Substance: LOPERAMIDE OXIDE
     Indication: ADVERSE EVENT
     Dates: start: 20140730, end: 20140806

REACTIONS (1)
  - Metabolic acidosis [Recovered/Resolved]

NARRATIVE: CASE EVENT DATE: 20140805
